FAERS Safety Report 14744250 (Version 1)
Quarter: 2018Q2

REPORT INFORMATION
  Report Type: Spontaneous
  Country: US (occurrence: US)
  Receive Date: 20180405
  Receipt Date: 20180405
  Transmission Date: 20180711
  Serious: Yes (Other)
  Sender: FDA-Public Use
  Company Number: None

PATIENT
  Age: 6 Year
  Sex: Male
  Weight: 23.85 kg

DRUGS (5)
  1. GUANFACINE. [Suspect]
     Active Substance: GUANFACINE
     Indication: TOURETTE^S DISORDER
     Route: 048
     Dates: start: 20170401
  2. MIRALAX [Concomitant]
     Active Substance: POLYETHYLENE GLYCOL 3350
  3. MELATONIN [Concomitant]
     Active Substance: MELATONIN
  4. DAILY MULTI VITAMIN GUMMY [Concomitant]
  5. FIBER GUMMY FOR KIDS [Concomitant]

REACTIONS (9)
  - Constipation [None]
  - Aggression [None]
  - Irritability [None]
  - Abdominal pain upper [None]
  - Nightmare [None]
  - Migraine [None]
  - Suicidal ideation [None]
  - Self-injurious ideation [None]
  - Mood swings [None]

NARRATIVE: CASE EVENT DATE: 20180101
